FAERS Safety Report 5628589-5 (Version None)
Quarter: 2008Q1

REPORT INFORMATION
  Report Type: 
  Country: None (occurrence: None)
  Receive Date: 20080215
  Receipt Date: 20080207
  Transmission Date: 20080703
  Serious: Yes (Hospitalization, Other)
  Sender: FDA-Public Use
  Company Number: US-MERCK-0709USA04356

PATIENT
  Age: 62 Year
  Sex: Female

DRUGS (4)
  1. FOSAMAX [Suspect]
     Indication: OSTEOPOROSIS
     Route: 048
     Dates: start: 19960318
  2. FOSAMAX [Suspect]
     Route: 048
     Dates: start: 20031114, end: 20060201
  3. AMBIEN [Concomitant]
     Indication: INSOMNIA
     Route: 065
     Dates: start: 19941101, end: 20030501
  4. HORMONES (UNSPECIFIED) [Concomitant]
     Route: 065
     Dates: start: 19950601

REACTIONS (34)
  - ABDOMINAL PAIN [None]
  - AFFECT LABILITY [None]
  - BACK PAIN [None]
  - BARRETT'S OESOPHAGUS [None]
  - BLINDNESS TRANSIENT [None]
  - BLOOD GLUCOSE INCREASED [None]
  - BONE EROSION [None]
  - DEAFNESS [None]
  - DEAFNESS BILATERAL [None]
  - DEVICE MALFUNCTION [None]
  - DRUG HYPERSENSITIVITY [None]
  - DYSPNOEA EXERTIONAL [None]
  - EAR DISORDER [None]
  - FALL [None]
  - GASTROOESOPHAGEAL REFLUX DISEASE [None]
  - HEAD INJURY [None]
  - HEADACHE [None]
  - HIATUS HERNIA [None]
  - HYPOACUSIS [None]
  - LOSS OF CONSCIOUSNESS [None]
  - MASTOIDITIS [None]
  - NAUSEA [None]
  - NECK INJURY [None]
  - OSTEOMYELITIS [None]
  - OSTEONECROSIS [None]
  - OTITIS MEDIA CHRONIC [None]
  - OTORRHOEA [None]
  - PRURITUS [None]
  - PSYCHOTIC BEHAVIOUR [None]
  - ROAD TRAFFIC ACCIDENT [None]
  - SINUSITIS [None]
  - TEMPORAL ARTERITIS [None]
  - TYMPANIC MEMBRANE PERFORATION [None]
  - VERTIGO [None]
